FAERS Safety Report 5898455-9 (Version None)
Quarter: 2008Q3

REPORT INFORMATION
  Report Type: 
  Country: None (occurrence: None)
  Receive Date: 20080925
  Receipt Date: 20071113
  Transmission Date: 20090109
  Serious: No
  Sender: FDA-Public Use
  Company Number: A0694211A

PATIENT
  Age: 60 Year
  Sex: Male

DRUGS (7)
  1. WELLBUTRIN XL [Suspect]
     Dosage: 150MG PER DAY
     Route: 048
     Dates: start: 20071106
  2. METHOTREXATE [Concomitant]
  3. PREDNISONE [Concomitant]
  4. FINASTERIDE [Concomitant]
  5. FLOMAX [Concomitant]
  6. NAPROSYN [Concomitant]
  7. TRAMADOL HCL [Concomitant]

REACTIONS (1)
  - DIARRHOEA [None]
